FAERS Safety Report 7767984-5 (Version None)
Quarter: 2011Q3

REPORT INFORMATION
  Report Type: 
  Country: None (occurrence: None)
  Receive Date: 20110922
  Receipt Date: 20110711
  Transmission Date: 20111222
  Serious: No
  Sender: FDA-Public Use
  Company Number: US-ASTRAZENECA-2009SE26349

PATIENT
  Age: 75 Year
  Sex: Female
  Weight: 72.6 kg

DRUGS (7)
  1. SEROQUEL [Suspect]
     Indication: BIPOLAR DISORDER
     Route: 048
     Dates: start: 20090701
  2. NORVASC [Concomitant]
  3. LISINOPRIL [Concomitant]
  4. SEROQUEL [Suspect]
     Route: 048
     Dates: start: 20091001
  5. TRILEPTAL [Concomitant]
  6. TRIAMTERENE AND HYDROCHLOROTHIAZIDE [Concomitant]
  7. LORAZEPAM [Concomitant]

REACTIONS (17)
  - NASAL CONGESTION [None]
  - AMNESIA [None]
  - DRY MOUTH [None]
  - EYELID OEDEMA [None]
  - HYPONATRAEMIA [None]
  - DYSKINESIA [None]
  - WHITE BLOOD CELL COUNT DECREASED [None]
  - SKIN DISORDER [None]
  - SKIN EXFOLIATION [None]
  - INCREASED APPETITE [None]
  - DIZZINESS [None]
  - RASH [None]
  - HEART RATE INCREASED [None]
  - CONSTIPATION [None]
  - COGNITIVE DISORDER [None]
  - DYSURIA [None]
  - WEIGHT INCREASED [None]
